FAERS Safety Report 6405032-X (Version None)
Quarter: 2009Q4

REPORT INFORMATION
  Report Type: 
  Country: None (occurrence: None)
  Receive Date: 20091019
  Receipt Date: 20090917
  Transmission Date: 20100525
  Serious: No
  Sender: FDA-Public Use
  Company Number: US-BAYER-200933591NA

PATIENT
  Age: 84 Year
  Sex: Female

DRUGS (3)
  1. NEXAVAR [Suspect]
     Indication: DRUG USE FOR UNKNOWN INDICATION
     Dosage: TOTAL DAILY DOSE: 800 MG  UNIT DOSE: 200 MG
     Route: 048
     Dates: start: 20090820
  2. RANITIDINE [Concomitant]
     Dates: start: 20090916
  3. ALPRAZOLAM [Concomitant]

REACTIONS (3)
  - RASH GENERALISED [None]
  - SWELLING FACE [None]
  - URTICARIA [None]
